FAERS Safety Report 15770662 (Version 1)
Quarter: 2018Q4

REPORT INFORMATION
  Report Type: Spontaneous
  Country: US (occurrence: US)
  Receive Date: 20181228
  Receipt Date: 20181228
  Transmission Date: 20190205
  Serious: No
  Sender: FDA-Public Use
  Company Number: US-PFIZER INC-2018010189

PATIENT
  Age: 4 Year
  Sex: Male

DRUGS (1)
  1. GENOTROPIN [Suspect]
     Active Substance: SOMATROPIN
     Indication: SILVER-RUSSELL SYNDROME
     Dosage: 0.6 MG, DAILY

REACTIONS (6)
  - Blood urea nitrogen/creatinine ratio increased [Unknown]
  - Carbon dioxide decreased [Unknown]
  - Product dose omission [Unknown]
  - Blood creatinine decreased [Unknown]
  - Product use in unapproved indication [Unknown]
  - Blood calcium increased [Unknown]
